FAERS Safety Report 9259935 (Version 4)
Quarter: 2014Q4

REPORT INFORMATION
  Report Type: Spontaneous
  Country: BE (occurrence: BE)
  Receive Date: 20130429
  Receipt Date: 20141003
  Transmission Date: 20150529
  Serious: Yes (Other)
  Sender: FDA-Public Use
  Company Number: BE-AMGEN-BELSP2013028995

PATIENT
  Age: 58 Year
  Sex: Male

DRUGS (1)
  1. PROLIA [Suspect]
     Active Substance: DENOSUMAB
     Indication: OSTEOPOROSIS
     Dosage: 60 MG, Q6MO
     Route: 058
     Dates: start: 201207

REACTIONS (4)
  - Osteomyelitis [Unknown]
  - Osteonecrosis of jaw [Recovered/Resolved]
  - Pain [Unknown]
  - Tooth extraction [Unknown]

NARRATIVE: CASE EVENT DATE: 201211
